FAERS Safety Report 4667267-6 (Version None)
Quarter: 2005Q2

REPORT INFORMATION
  Report Type: 
  Country: None (occurrence: None)
  Receive Date: 20050520
  Receipt Date: 20040823
  Transmission Date: 20051028
  Serious: Yes (Other)
  Sender: FDA-Public Use
  Company Number: PHEH2004US09473

PATIENT
  Age: 27 Year
  Sex: Female

DRUGS (1)
  1. ZOMETA [Suspect]
     Dosage: 4 MG, UNK
     Route: 042
     Dates: start: 20031027, end: 20040709

REACTIONS (2)
  - OSTEONECROSIS [None]
  - TOOTH DISORDER [None]
